FAERS Safety Report 20202920 (Version 2)
Quarter: 2022Q1

REPORT INFORMATION
  Report Type: Spontaneous
  Country: US (occurrence: US)
  Receive Date: 20211218
  Receipt Date: 20220327
  Transmission Date: 20220423
  Serious: Yes (Other)
  Sender: FDA-Public Use
  Company Number: US-JNJFOC-20211218195

PATIENT
  Age: 53 Year
  Sex: Male

DRUGS (2)
  1. TREMFYA [Suspect]
     Active Substance: GUSELKUMAB
     Indication: Psoriasis
     Route: 058
  2. TREMFYA [Suspect]
     Active Substance: GUSELKUMAB

REACTIONS (1)
  - Myelitis transverse [Recovering/Resolving]

NARRATIVE: CASE EVENT DATE: 20211207
